FAERS Safety Report 24587569 (Version 2)
Quarter: 2024Q4

REPORT INFORMATION
  Report Type: Spontaneous
  Country: FR (occurrence: FR)
  Receive Date: 20241107
  Receipt Date: 20241112
  Transmission Date: 20250115
  Serious: Yes (Other)
  Sender: SANOFI AVENTIS
  Company Number: FR-SANOFI-01940641

PATIENT
  Age: 58 Year
  Sex: Male

DRUGS (3)
  1. AMISULPRIDE [Suspect]
     Active Substance: AMISULPRIDE
     Indication: Sexual dysfunction
     Dosage: 200 MG A DAY (1 TAB OF 200 MG)
     Route: 048
     Dates: start: 1993
  2. AMISULPRIDE [Suspect]
     Active Substance: AMISULPRIDE
     Indication: Schizophrenia
     Dosage: 100 MG, QOD
     Route: 048
  3. ISONIAZID\RIFAMPIN [Suspect]
     Active Substance: ISONIAZID\RIFAMPIN
     Dosage: UNK

REACTIONS (13)
  - Hallucination, auditory [Recovering/Resolving]
  - Schizophrenia [Recovered/Resolved]
  - Paedophilia [Recovered/Resolved]
  - Aggression [Recovered/Resolved]
  - Abnormal behaviour [Recovered/Resolved]
  - Discomfort [Recovered/Resolved]
  - Anaesthesia [Recovering/Resolving]
  - Psychiatric symptom [Unknown]
  - Impulse-control disorder [Recovering/Resolving]
  - Agitation [Recovering/Resolving]
  - Disturbance in sexual arousal [Recovered/Resolved]
  - Drug ineffective [Unknown]
  - Off label use [Unknown]
